FAERS Safety Report 5841744-4 (Version None)
Quarter: 2008Q3

REPORT INFORMATION
  Report Type: 
  Country: None (occurrence: None)
  Receive Date: 20080812
  Receipt Date: 20080806
  Transmission Date: 20090109
  Serious: Yes (Life-Threatening, Hospitalization)
  Sender: FDA-Public Use
  Company Number: JP-JNJFOC-20080407120

PATIENT
  Sex: Male
  Weight: 61 kg

DRUGS (12)
  1. ITRIZOLE [Suspect]
     Route: 041
  2. ITRIZOLE [Suspect]
     Indication: FEBRILE NEUTROPENIA
     Route: 041
  3. TARGOCID [Suspect]
     Indication: SEPSIS
     Route: 041
  4. FINIBAX [Suspect]
     Indication: SEPSIS
     Route: 041
  5. INOVAN [Concomitant]
     Indication: SEPTIC SHOCK
     Route: 042
  6. OMEGACIN [Concomitant]
     Indication: SEPSIS
     Route: 041
  7. MINOCYCLINE HYDROCHLORIDE [Concomitant]
     Indication: SEPSIS
     Route: 042
  8. FILGRASTIM [Concomitant]
     Indication: NEUTROPENIA
     Route: 042
  9. CARBENIN [Concomitant]
     Indication: SEPSIS
     Route: 041
  10. MODACIN [Concomitant]
     Indication: SEPSIS
     Route: 042
  11. ALBUMIN (HUMAN) [Concomitant]
     Indication: HYPOKALAEMIA
     Route: 042
  12. POTASSIUM CHLORIDE [Concomitant]
     Indication: HYPOKALAEMIA
     Route: 042

REACTIONS (5)
  - HYPOALBUMINAEMIA [None]
  - HYPOKALAEMIA [None]
  - PLEURAL EFFUSION [None]
  - RENAL IMPAIRMENT [None]
  - SEPTIC SHOCK [None]
